FAERS Safety Report 6145156-8 (Version None)
Quarter: 2009Q2

REPORT INFORMATION
  Report Type: 
  Country: None (occurrence: None)
  Receive Date: 20090402
  Receipt Date: 20090209
  Transmission Date: 20091009
  Serious: No
  Sender: FDA-Public Use
  Company Number: 1000004195

PATIENT
  Age: 80 Year
  Sex: Female
  Weight: 107.7747 kg

DRUGS (14)
  1. BYSTOLIC [Suspect]
     Indication: HYPERTENSION
     Dosage: 5 MG (5 MG, 1 IN 1 D), ORAL
     Route: 048
     Dates: start: 20081031, end: 20081106
  2. BYSTOLIC [Suspect]
     Indication: HYPERTENSION
     Dosage: 2.5 MG (2.5 MG, 1 IN 1 D), ORAL
     Route: 048
     Dates: start: 20081121, end: 20081203
  3. VERAPAMIL [Concomitant]
  4. TRANXENE [Concomitant]
  5. LIPITOR [Concomitant]
  6. VASOTEC [Concomitant]
  7. ALLEGRA [Concomitant]
  8. POTASSIUM CHLORIDE [Concomitant]
  9. COUMADIN [Concomitant]
  10. DARVOCET [Concomitant]
  11. MULTI-VITAMIN [Concomitant]
  12. PRILOSEC [Concomitant]
  13. SYNTHROID [Concomitant]
  14. LASIX [Concomitant]

REACTIONS (3)
  - ABNORMAL DREAMS [None]
  - DRY EYE [None]
  - MALAISE [None]
